FAERS Safety Report 16157400 (Version 1)
Quarter: 2019Q2

REPORT INFORMATION
  Report Type: Spontaneous
  Country: US (occurrence: US)
  Receive Date: 20190404
  Receipt Date: 20190404
  Transmission Date: 20190711
  Serious: No
  Sender: FDA-Public Use
  Company Number: US-PFIZER INC-2019137443

PATIENT
  Age: 86 Year
  Sex: Male
  Weight: 97.98 kg

DRUGS (1)
  1. LYRICA [Suspect]
     Active Substance: PREGABALIN
     Indication: NEUROPATHY PERIPHERAL
     Dosage: 100 MG, 3X/DAY, (1 CAPSULE BY MOUTH EVERY MORNING AND THEN TAKE 2 CAPSULES BY MOUTH EVERY EVENING)
     Route: 048
     Dates: start: 2018, end: 20190326

REACTIONS (3)
  - Withdrawal syndrome [Unknown]
  - Product dispensing error [Unknown]
  - Product prescribing error [Unknown]

NARRATIVE: CASE EVENT DATE: 2018
